FAERS Safety Report 6776562-6 (Version None)
Quarter: 2010Q2

REPORT INFORMATION
  Report Type: 
  Country: None (occurrence: None)
  Receive Date: 20100615
  Receipt Date: 20100601
  Transmission Date: 20101027
  Serious: Yes (Other)
  Sender: FDA-Public Use
  Company Number: 2010AP001056

PATIENT
  Age: 69 Year
  Sex: Female

DRUGS (16)
  1. PENTOXIFYLLINE [Suspect]
  2. DAPAGLIFLOZIN  (DAPAGLIFLOZIN) [Suspect]
     Indication: TYPE 2 DIABETES MELLITUS
     Dosage: 10 MG;QD; PO
     Route: 048
  3. PLACEBO  (PLACEBO) [Suspect]
     Indication: TYPE 2 DIABETES MELLITUS
     Dosage: PO
     Route: 048
  4. TRANDOLAPRIL [Suspect]
     Indication: HYPERTENSION
     Dosage: 2 MG; QD; PO
     Route: 048
  5. SPIRONOLACTONE [Suspect]
     Indication: HYPERTENSION
     Dosage: 2 MG;QD; PO
     Route: 048
  6. FUROSEMIDE [Suspect]
     Indication: HYPERTENSION
     Dosage: 6 MG; QD; PO
     Route: 048
  7. ACTRAPID HUMAN (INSULIN HUMAN) [Suspect]
     Indication: DIABETES MELLITUS
     Dosage: 1 DF;QD; PARN
     Route: 051
  8. INSULATARD NPH HUMAN [Suspect]
     Indication: DIABETES MELLITUS
     Dosage: 1 DF;QD; PARN
     Route: 051
     Dates: start: 19940101
  9. METFORMIN HYDROCHLORIDE [Suspect]
     Indication: DIABETES MELLITUS
     Dosage: 2550 MG;QD; PO
     Route: 048
  10. SOTALOL HCL [Suspect]
     Indication: ARRHYTHMIA
     Dosage: PO
     Route: 048
  11. BESTPIRIN (ACETYLSALICYLIC ACID) [Suspect]
     Indication: CORONARY ARTERY DISEASE
     Dosage: PO
     Route: 048
  12. ALLOPURINOL [Suspect]
     Indication: GOUT
     Dosage: PO
     Route: 048
  13. ATORVASTATIN CALCIUM [Suspect]
     Indication: HYPERCHOLESTEROLAEMIA
     Dosage: PO
     Route: 048
  14. MILGAMMA (MILGAMMA) [Suspect]
     Dosage: PO
     Route: 048
  15. TRANXENE [Suspect]
     Dosage: PO
     Route: 048
  16. KETOPROFEN [Suspect]
     Dosage: PO
     Route: 048

REACTIONS (2)
  - PERIPHERAL VASCULAR DISORDER [None]
  - PULSE ABSENT [None]
